FAERS Safety Report 14424423 (Version 4)
Quarter: 2019Q3

REPORT INFORMATION
  Report Type: Report from Study
  Country: US (occurrence: US)
  Receive Date: 20180123
  Receipt Date: 20190814
  Transmission Date: 20191004
  Serious: Yes (Life-Threatening, Hospitalization, Other)
  Sender: FDA-Public Use
  Company Number: US-BRISTOL-MYERS SQUIBB COMPANY-BMS-2018-001640

PATIENT
  Age: 78 Year
  Sex: Female
  Weight: 46.7 kg

DRUGS (15)
  1. TELISOTUZUMAB VEDOTIN [Suspect]
     Active Substance: TELISOTUZUMAB VEDOTIN
     Indication: PRODUCT USED FOR UNKNOWN INDICATION
     Dosage: 1.6 MILLIGRAM/KILOGRAM, Q2WK
     Route: 042
     Dates: start: 20180125
  2. LOPRESSOR [Concomitant]
     Active Substance: METOPROLOL TARTRATE
     Indication: PRODUCT USED FOR UNKNOWN INDICATION
     Dosage: 12.5 MILLIGRAM, BID
     Route: 048
     Dates: start: 20171003, end: 20180116
  3. NIVOLUMAB [Suspect]
     Active Substance: NIVOLUMAB
     Indication: NEOPLASM
     Dosage: 240 MILLIGRAM, Q2WK
     Route: 042
     Dates: start: 20170727, end: 20171214
  4. FOLVITE [Concomitant]
     Active Substance: FOLIC ACID
     Indication: ANAEMIA PROPHYLAXIS
     Dosage: 1 MILLIGRAM, QD
     Route: 048
     Dates: start: 20160229, end: 20180105
  5. ARTIFICIAL TEARS                   /00582501/ [Concomitant]
     Indication: VISION BLURRED
     Dosage: 1 DOSAGE FORM, QID
     Route: 047
     Dates: start: 20171009
  6. DECADRON [Concomitant]
     Active Substance: DEXAMETHASONE
     Indication: PROPHYLAXIS
     Dosage: 4 MILLIGRAM, AS REQUIRED
     Route: 048
     Dates: start: 20170516, end: 20180123
  7. COMPAZINE                          /00013302/ [Concomitant]
     Active Substance: PROCHLORPERAZINE EDISYLATE
     Indication: PROPHYLAXIS OF NAUSEA AND VOMITING
     Dosage: 30 MG, PRN
     Route: 048
     Dates: start: 20160229, end: 20180105
  8. FLONASE                            /00908302/ [Concomitant]
     Active Substance: MOMETASONE FUROATE
     Indication: RESPIRATORY TRACT CONGESTION
     Dosage: 1 DOSAGE FORM, QD
     Route: 055
     Dates: start: 20171031, end: 20180129
  9. NIVOLUMAB [Suspect]
     Active Substance: NIVOLUMAB
     Indication: PRODUCT USED FOR UNKNOWN INDICATION
     Dosage: 240 MILLIGRAM, Q2WK
     Route: 042
     Dates: start: 20180125
  10. MEGACE [Suspect]
     Active Substance: MEGESTROL ACETATE
     Indication: HYPOALBUMINAEMIA
     Dosage: 10 MILLILITER, QD
     Route: 048
     Dates: start: 20171212, end: 20180108
  11. LOPRESSOR [Concomitant]
     Active Substance: METOPROLOL TARTRATE
     Indication: HYPERTENSION
     Dosage: 25 MG, BID
     Route: 048
     Dates: start: 20170925, end: 20171003
  12. PRED FORTE [Concomitant]
     Active Substance: PREDNISOLONE ACETATE
     Indication: VISION BLURRED
     Dosage: 1 DOSAGE FORM, BID
     Route: 047
     Dates: start: 20171009
  13. TELISOTUZUMAB VEDOTIN [Suspect]
     Active Substance: TELISOTUZUMAB VEDOTIN
     Indication: NEOPLASM
     Dosage: 1.9 MILLIGRAM/KILOGRAM, Q2WK
     Route: 042
     Dates: start: 20170727, end: 20171214
  14. EMLA [Concomitant]
     Active Substance: LIDOCAINE\PRILOCAINE
     Indication: CENTRAL VENOUS CATHETERISATION
     Dosage: 1 DF, PRN
     Route: 061
     Dates: start: 20170731
  15. MULTIVITAMIN                       /00097801/ [Concomitant]
     Active Substance: VITAMINS
     Indication: SUPPLEMENTATION THERAPY
     Dosage: 2 TAB, QD
     Route: 048
     Dates: start: 20140912, end: 20180105

REACTIONS (1)
  - Pulmonary embolism [Recovered/Resolved]

NARRATIVE: CASE EVENT DATE: 20180105
